FAERS Safety Report 20642347 (Version 1)
Quarter: 2022Q1

REPORT INFORMATION
  Report Type: Spontaneous
  Country: US (occurrence: US)
  Receive Date: 20220328
  Receipt Date: 20220328
  Transmission Date: 20220423
  Serious: No
  Sender: FDA-Public Use
  Company Number: US-AUROBINDO-AUR-APL-2022-002678

PATIENT
  Age: 74 Year
  Sex: Female
  Weight: 56.7 kg

DRUGS (7)
  1. LATANOPROST [Suspect]
     Active Substance: LATANOPROST
     Indication: Glaucoma
     Dosage: 1 DROP, IN THE RIGHT EYE AT THE BED TIME
     Route: 065
     Dates: start: 20210715
  2. ALPHAGAN P [Suspect]
     Active Substance: BRIMONIDINE TARTRATE
     Indication: Product used for unknown indication
     Dosage: UNK
     Route: 065
  3. MOXIFLOXACIN [Concomitant]
     Active Substance: MOXIFLOXACIN
     Indication: Product used for unknown indication
     Dosage: 4 DROP A DAY FOR 2 WEEKS
     Route: 065
     Dates: start: 20211201
  4. MOXIFLOXACIN [Concomitant]
     Active Substance: MOXIFLOXACIN
     Dosage: 2 DROP, ONCE A DAY, FOR TEO WEEKS
     Route: 065
     Dates: start: 20211201
  5. MOXIFLOXACIN [Concomitant]
     Active Substance: MOXIFLOXACIN
     Dosage: 1 DROP, IN RIGHT EYE FOUR TIMES A DAY FOR TWO WEEKS
     Route: 065
  6. MOXIFLOXACIN [Concomitant]
     Active Substance: MOXIFLOXACIN
     Dosage: 1 DROP, TWO TIMES A DAY
     Route: 065
  7. Timol [Concomitant]
     Indication: Glaucoma
     Dosage: 1 DROP, TWO TIMES A DAY
     Route: 065

REACTIONS (6)
  - Erythema of eyelid [Unknown]
  - Conjunctivitis [Unknown]
  - Lacrimation increased [Unknown]
  - Dry eye [Unknown]
  - Swelling of eyelid [Unknown]
  - Intraocular pressure increased [Unknown]

NARRATIVE: CASE EVENT DATE: 20210101
